FAERS Safety Report 24436070 (Version 1)
Quarter: 2024Q4

REPORT INFORMATION
  Report Type: Report from Study
  Country: ES (occurrence: ES)
  Receive Date: 20241015
  Receipt Date: 20241015
  Transmission Date: 20250114
  Serious: Yes (Hospitalization, Other)
  Sender: SANDOZ
  Company Number: ES-002147023-NVSC2021ES082764

PATIENT
  Age: 59 Year
  Sex: Male
  Weight: 83 kg

DRUGS (98)
  1. CARBOPLATIN [Suspect]
     Active Substance: CARBOPLATIN
     Indication: B-cell lymphoma refractory
     Dosage: 463.93 MG, ONCE/SINGLE
     Route: 042
     Dates: start: 20210121
  2. CISPLATIN [Suspect]
     Active Substance: CISPLATIN
     Indication: B-cell lymphoma refractory
     Dosage: 146.7 MG, ONCE/SINGLE
     Route: 042
     Dates: start: 20201106
  3. CYCLOPHOSPHAMIDE [Suspect]
     Active Substance: CYCLOPHOSPHAMIDE
     Indication: Chemotherapy
     Dosage: 513 MG, ONCE
     Route: 065
     Dates: start: 20210303, end: 20210303
  4. CYCLOPHOSPHAMIDE [Suspect]
     Active Substance: CYCLOPHOSPHAMIDE
     Dosage: 513 MG, ONCE
     Route: 065
     Dates: start: 20210304, end: 20210304
  5. CYCLOPHOSPHAMIDE [Suspect]
     Active Substance: CYCLOPHOSPHAMIDE
     Dosage: 513 MG, ONCE
     Route: 065
     Dates: start: 20210305, end: 20210305
  6. DEXAMETHASONE [Suspect]
     Active Substance: DEXAMETHASONE
     Indication: B-cell lymphoma refractory
     Dosage: 160 MG, EVERYDAY
     Route: 048
     Dates: start: 20201106
  7. ETOPOSIDE [Suspect]
     Active Substance: ETOPOSIDE
     Indication: B-cell lymphoma refractory
     Dosage: 209.6 MG, ONCE/SINGLE
     Route: 042
     Dates: start: 20210120
  8. FLUDARABINE [Suspect]
     Active Substance: FLUDARABINE PHOSPHATE
     Indication: Product used for unknown indication
     Dosage: 51.3 MG, ONCE
     Route: 065
     Dates: start: 20210303, end: 20210303
  9. FLUDARABINE [Suspect]
     Active Substance: FLUDARABINE PHOSPHATE
     Dosage: 51.3 MG, ONCE
     Route: 065
     Dates: start: 20210304, end: 20210304
  10. FLUDARABINE [Suspect]
     Active Substance: FLUDARABINE PHOSPHATE
     Dosage: 51.3 MG, ONCE
     Route: 065
     Dates: start: 20210305, end: 20210305
  11. GEMCITABINE [Suspect]
     Active Substance: GEMCITABINE
     Indication: B-cell lymphoma refractory
     Dosage: 1956 MG, ONCE/SINGLE
     Route: 042
     Dates: start: 20201106
  12. IFOSFAMIDE [Suspect]
     Active Substance: IFOSFAMIDE
     Indication: B-cell lymphoma refractory
     Dosage: 10480 MG, CONT (CONTINOUS INFUSION 24HR)
     Route: 042
     Dates: start: 20210121
  13. MESNA [Suspect]
     Active Substance: MESNA
     Indication: B-cell lymphoma refractory
     Dosage: 10480 MG, CONT (CONTINOUS INFUSION 24 HR)
     Route: 042
     Dates: start: 20210121
  14. RITUXIMAB [Suspect]
     Active Substance: RITUXIMAB
     Indication: B-cell lymphoma refractory
     Dosage: 733.5 MG, ONCE/SINGLE
     Route: 042
     Dates: start: 20201106
  15. TOCILIZUMAB [Suspect]
     Active Substance: TOCILIZUMAB
     Indication: Non-Hodgkin^s lymphoma
     Dosage: 8 MG/KG
     Route: 042
     Dates: start: 20210311
  16. ACYCLOVIR [Concomitant]
     Active Substance: ACYCLOVIR
     Indication: Prophylaxis
     Dosage: UNK
     Route: 065
     Dates: start: 20210310
  17. ALLOPURINOL [Concomitant]
     Active Substance: ALLOPURINOL
     Indication: Prophylaxis
     Dosage: UNK
     Route: 065
     Dates: start: 20210309, end: 20210811
  18. AMIKACIN [Concomitant]
     Active Substance: AMIKACIN
     Indication: Infection prophylaxis
     Dosage: UNK
     Route: 065
     Dates: start: 20210311, end: 20210412
  19. COTRIMOXAZOLE [Concomitant]
     Active Substance: SULFAMETHOXAZOLE\TRIMETHOPRIM
     Indication: Lymphopenia
     Dosage: UNK
     Route: 065
     Dates: start: 20210411, end: 20210412
  20. DEXCHLORPHENIRAMINE [Concomitant]
     Active Substance: DEXCHLORPHENIRAMINE
     Indication: Prophylaxis
     Dosage: UNK
     Route: 065
     Dates: start: 20210320, end: 20210321
  21. DEXCHLORPHENIRAMINE [Concomitant]
     Active Substance: DEXCHLORPHENIRAMINE
     Dosage: UNK
     Route: 065
     Dates: start: 20210414, end: 20210415
  22. DEXKETOPROFEN [Concomitant]
     Active Substance: DEXKETOPROFEN
     Indication: Pain prophylaxis
     Dosage: UNK
     Route: 065
     Dates: start: 20210403, end: 20210408
  23. ENOXAPARIN [Concomitant]
     Active Substance: ENOXAPARIN
     Indication: Prophylaxis
     Dosage: UNK
     Route: 065
     Dates: start: 20210316, end: 20210325
  24. ENOXAPARIN [Concomitant]
     Active Substance: ENOXAPARIN
     Dosage: UNK
     Route: 065
     Dates: start: 20210403, end: 20210403
  25. ENOXAPARIN [Concomitant]
     Active Substance: ENOXAPARIN
     Dosage: UNK
     Route: 065
     Dates: start: 20210403, end: 20210430
  26. ENOXAPARIN [Concomitant]
     Active Substance: ENOXAPARIN
     Dosage: UNK
     Route: 065
     Dates: start: 20210426, end: 20210426
  27. ENTECAVIR [Concomitant]
     Active Substance: ENTECAVIR
     Indication: Antiviral prophylaxis
     Dosage: UNK
     Route: 065
  28. FILGRASTIM [Concomitant]
     Active Substance: FILGRASTIM
     Indication: Prophylaxis
     Dosage: UNK
     Route: 065
     Dates: start: 20210323, end: 20210324
  29. FILGRASTIM [Concomitant]
     Active Substance: FILGRASTIM
     Dosage: UNK
     Route: 065
     Dates: start: 20210324, end: 20210324
  30. FILGRASTIM [Concomitant]
     Active Substance: FILGRASTIM
     Dosage: UNK
     Route: 065
     Dates: start: 20210324, end: 20210329
  31. FILGRASTIM [Concomitant]
     Active Substance: FILGRASTIM
     Dosage: UNK
     Route: 065
     Dates: start: 20210329, end: 20210414
  32. FILGRASTIM [Concomitant]
     Active Substance: FILGRASTIM
     Dosage: UNK
     Route: 065
     Dates: start: 20210416, end: 20210424
  33. FLUCONAZOLE [Concomitant]
     Active Substance: FLUCONAZOLE
     Indication: Candida infection
     Dosage: UNK
     Route: 065
     Dates: start: 20210325, end: 20210325
  34. FLUCONAZOLE [Concomitant]
     Active Substance: FLUCONAZOLE
     Dosage: UNK
     Route: 065
     Dates: start: 20210325, end: 20210406
  35. FUROSEMIDE [Concomitant]
     Active Substance: FUROSEMIDE
     Indication: Renal impairment
     Dosage: UNK
     Route: 065
     Dates: start: 20210127
  36. FUROSEMIDE [Concomitant]
     Active Substance: FUROSEMIDE
     Indication: Cytokine release syndrome
     Dosage: UNK
     Route: 065
     Dates: start: 20210315, end: 20210319
  37. FUROSEMIDE [Concomitant]
     Active Substance: FUROSEMIDE
     Indication: Prophylaxis
     Dosage: UNK
     Route: 065
     Dates: start: 20210126
  38. FUROSEMIDE [Concomitant]
     Active Substance: FUROSEMIDE
     Indication: Prophylaxis
     Dosage: UNK
     Route: 065
     Dates: start: 20210314, end: 20210317
  39. FUROSEMIDE [Concomitant]
     Active Substance: FUROSEMIDE
     Indication: Renal disorder
     Dosage: UNK
     Route: 065
     Dates: start: 20210313, end: 20210314
  40. FUROSEMIDE [Concomitant]
     Active Substance: FUROSEMIDE
     Dosage: UNK
     Route: 065
     Dates: start: 20210309, end: 20210513
  41. FUROSEMIDE [Concomitant]
     Active Substance: FUROSEMIDE
     Dosage: UNK
     Route: 065
     Dates: start: 20210319, end: 20210321
  42. FUROSEMIDE [Concomitant]
     Active Substance: FUROSEMIDE
     Dosage: UNK
     Route: 065
     Dates: start: 20210321, end: 20210322
  43. FUROSEMIDE [Concomitant]
     Active Substance: FUROSEMIDE
     Dosage: UNK
     Route: 065
     Dates: start: 20210403, end: 20210406
  44. FUROSEMIDE [Concomitant]
     Active Substance: FUROSEMIDE
     Dosage: UNK
     Route: 065
     Dates: start: 20210406, end: 20210413
  45. FUROSEMIDE [Concomitant]
     Active Substance: FUROSEMIDE
     Dosage: UNK
     Route: 065
     Dates: start: 20210413, end: 20210414
  46. FUROSEMIDE [Concomitant]
     Active Substance: FUROSEMIDE
     Dosage: UNK
     Route: 065
     Dates: start: 20210417, end: 20210419
  47. FUROSEMIDE [Concomitant]
     Active Substance: FUROSEMIDE
     Dosage: UNK
     Route: 065
     Dates: start: 20210419, end: 20210419
  48. FUROSEMIDE [Concomitant]
     Active Substance: FUROSEMIDE
     Dosage: UNK
     Route: 065
     Dates: start: 20210420, end: 20210501
  49. GRANULOCYTE COLONY-STIMULATING FACTOR NOS [Concomitant]
     Active Substance: GRANULOCYTE COLONY-STIMULATING FACTOR NOS
     Indication: Prophylaxis
     Dosage: UNK
     Route: 065
     Dates: start: 20210329, end: 20210414
  50. LEVETIRACETAM [Concomitant]
     Active Substance: LEVETIRACETAM
     Indication: Pain prophylaxis
     Dosage: UNK
     Route: 065
     Dates: start: 20210310, end: 20210430
  51. LORMETAZEPAM [Concomitant]
     Active Substance: LORMETAZEPAM
     Indication: Prophylaxis
     Dosage: UNK
     Route: 065
  52. POLYETHYLENE GLYCOLS [Concomitant]
     Active Substance: POLYETHYLENE GLYCOLS
     Indication: Prophylaxis
     Dosage: UNK
     Route: 065
     Dates: start: 20210310, end: 20210414
  53. MAGNESIUM HYDROXIDE [Concomitant]
     Active Substance: MAGNESIUM HYDROXIDE
     Indication: Prophylaxis
     Dosage: UNK
     Route: 065
     Dates: start: 20210413, end: 20210506
  54. MAGNESIUM SULFATE [Concomitant]
     Active Substance: MAGNESIUM SULFATE
     Indication: Prophylaxis
     Dosage: UNK
     Route: 065
     Dates: start: 20210402, end: 20210411
  55. MAGNESIUM SULFATE [Concomitant]
     Active Substance: MAGNESIUM SULFATE
     Dosage: UNK
     Route: 065
     Dates: start: 20210411, end: 20210413
  56. METAMIZOLE [Concomitant]
     Active Substance: METAMIZOLE
     Indication: Abdominal pain
     Dosage: UNK
     Route: 065
     Dates: start: 20210311, end: 20210311
  57. METAMIZOLE [Concomitant]
     Active Substance: METAMIZOLE
     Dosage: UNK
     Route: 065
     Dates: start: 20210311, end: 20210313
  58. POTASSIUM PHOSPHATE, MONOBASIC [Concomitant]
     Active Substance: POTASSIUM PHOSPHATE, MONOBASIC
     Indication: Prophylaxis
     Dosage: UNK
     Route: 065
     Dates: start: 20210411, end: 20210413
  59. POTASSIUM PHOSPHATE, MONOBASIC [Concomitant]
     Active Substance: POTASSIUM PHOSPHATE, MONOBASIC
     Dosage: UNK
     Route: 065
     Dates: start: 20210419, end: 20210420
  60. MORPHINE [Concomitant]
     Active Substance: MORPHINE
     Indication: Pain prophylaxis
     Dosage: UNK
     Route: 065
     Dates: start: 20210402, end: 20210413
  61. MORPHINE [Concomitant]
     Active Substance: MORPHINE
     Dosage: UNK
     Route: 065
     Dates: start: 20210413, end: 20210506
  62. MORPHINE SULFATE [Concomitant]
     Active Substance: MORPHINE SULFATE
     Indication: Tumour pain
     Dosage: UNK
     Route: 065
     Dates: start: 20210322, end: 20210629
  63. OMEPRAZOLE [Concomitant]
     Active Substance: OMEPRAZOLE
     Indication: Prophylaxis
     Dosage: UNK
     Route: 065
     Dates: start: 20201105
  64. ONDANSETRON [Concomitant]
     Active Substance: ONDANSETRON
     Indication: Nausea
     Dosage: UNK
     Route: 065
     Dates: start: 20210309, end: 20210502
  65. ONDANSETRON [Concomitant]
     Active Substance: ONDANSETRON
     Indication: Vomiting
  66. ACETAMINOPHEN [Concomitant]
     Active Substance: ACETAMINOPHEN
     Indication: Abdominal pain
     Dosage: UNK
     Route: 065
     Dates: start: 20210309, end: 20210506
  67. ACETAMINOPHEN [Concomitant]
     Active Substance: ACETAMINOPHEN
     Indication: Pain prophylaxis
     Dosage: UNK
     Route: 065
     Dates: start: 20201016
  68. ACETAMINOPHEN [Concomitant]
     Active Substance: ACETAMINOPHEN
     Indication: Prophylaxis
     Dosage: UNK
     Route: 065
     Dates: start: 20210414, end: 20210415
  69. PENTAMIDINE ISETHIONATE [Concomitant]
     Active Substance: PENTAMIDINE ISETHIONATE
     Indication: Prophylaxis
     Dosage: UNK
     Route: 065
     Dates: start: 20210408, end: 20210506
  70. PIPERACILLIN AND TAZOBACTAM [Concomitant]
     Active Substance: PIPERACILLIN SODIUM\TAZOBACTAM SODIUM
     Indication: Infection prophylaxis
     Dosage: UNK
     Route: 065
     Dates: start: 20210311, end: 20210317
  71. POSACONAZOLE [Concomitant]
     Active Substance: POSACONAZOLE
     Indication: Neutropenia
     Dosage: UNK
     Route: 065
     Dates: start: 20210406, end: 20210407
  72. POSACONAZOLE [Concomitant]
     Active Substance: POSACONAZOLE
     Dosage: UNK
     Route: 065
     Dates: start: 20210407, end: 20210426
  73. POTASSIUM [Concomitant]
     Active Substance: POTASSIUM
     Indication: Hypokalaemia
     Dosage: UNK
     Route: 065
     Dates: start: 20210406, end: 20210407
  74. POTASSIUM [Concomitant]
     Active Substance: POTASSIUM
     Indication: Prophylaxis
     Dosage: UNK
     Route: 065
     Dates: start: 20210406, end: 20210406
  75. POTASSIUM [Concomitant]
     Active Substance: POTASSIUM
     Dosage: UNK
     Route: 065
     Dates: start: 20210407, end: 20210411
  76. POTASSIUM [Concomitant]
     Active Substance: POTASSIUM
     Dosage: UNK
     Route: 065
     Dates: start: 20210417, end: 20210426
  77. POTASSIUM [Concomitant]
     Active Substance: POTASSIUM
     Dosage: UNK
     Route: 065
  78. POTASSIUM CHLORIDE [Concomitant]
     Active Substance: POTASSIUM CHLORIDE
     Indication: Prophylaxis
     Dosage: UNK
     Route: 065
     Dates: start: 20210314, end: 20210315
  79. POTASSIUM CHLORIDE [Concomitant]
     Active Substance: POTASSIUM CHLORIDE
     Dosage: UNK
     Route: 065
     Dates: start: 20210315, end: 20210322
  80. POTASSIUM CHLORIDE [Concomitant]
     Active Substance: POTASSIUM CHLORIDE
     Dosage: UNK
     Route: 065
     Dates: start: 20210322, end: 20210323
  81. POTASSIUM CHLORIDE [Concomitant]
     Active Substance: POTASSIUM CHLORIDE
     Dosage: UNK
     Route: 065
     Dates: start: 20210408, end: 20210411
  82. POTASSIUM CHLORIDE [Concomitant]
     Active Substance: POTASSIUM CHLORIDE
     Dosage: UNK
     Route: 065
     Dates: start: 20210411, end: 20210413
  83. POTASSIUM CHLORIDE [Concomitant]
     Active Substance: POTASSIUM CHLORIDE
     Dosage: UNK
     Route: 065
     Dates: start: 20210413, end: 20210416
  84. POTASSIUM CHLORIDE [Concomitant]
     Active Substance: POTASSIUM CHLORIDE
     Dosage: UNK
     Route: 065
     Dates: start: 20210416, end: 20210425
  85. POTASSIUM CHLORIDE [Concomitant]
     Active Substance: POTASSIUM CHLORIDE
     Dosage: UNK
     Route: 065
     Dates: start: 20210425, end: 20210426
  86. POTASSIUM CHLORIDE [Concomitant]
     Active Substance: POTASSIUM CHLORIDE
     Dosage: UNK
     Route: 065
     Dates: start: 20210426, end: 20210427
  87. POTASSIUM CHLORIDE [Concomitant]
     Active Substance: POTASSIUM CHLORIDE
     Dosage: UNK
     Route: 065
     Dates: start: 20210427, end: 20210501
  88. SULFAMETHOXAZOLE\TRIMETHOPRIM [Concomitant]
     Active Substance: SULFAMETHOXAZOLE\TRIMETHOPRIM
     Indication: Prophylaxis
     Dosage: UNK
     Route: 065
  89. SULFAMETHOXAZOLE\TRIMETHOPRIM [Concomitant]
     Active Substance: SULFAMETHOXAZOLE\TRIMETHOPRIM
     Indication: Lymphopenia
  90. SODIUM CHLORIDE [Concomitant]
     Active Substance: SODIUM CHLORIDE
     Indication: Cytokine release syndrome
     Dosage: UNK
     Route: 065
     Dates: start: 20210426, end: 20210505
  91. SODIUM CHLORIDE [Concomitant]
     Active Substance: SODIUM CHLORIDE
     Indication: Prophylaxis
     Dosage: UNK
     Route: 065
     Dates: start: 20210411, end: 20210426
  92. SODIUM CHLORIDE [Concomitant]
     Active Substance: SODIUM CHLORIDE
     Dosage: UNK
     Route: 065
     Dates: start: 20210311, end: 20210314
  93. SODIUM CHLORIDE [Concomitant]
     Active Substance: SODIUM CHLORIDE
     Dosage: UNK
     Route: 065
     Dates: start: 20210314, end: 20210329
  94. SODIUM CHLORIDE [Concomitant]
     Active Substance: SODIUM CHLORIDE
     Dosage: UNK
     Route: 065
     Dates: start: 20210329, end: 20210411
  95. MORPHINE [Concomitant]
     Active Substance: MORPHINE
     Indication: Abdominal pain
     Dosage: UNK
     Route: 065
     Dates: start: 20210115
  96. MORPHINE [Concomitant]
     Active Substance: MORPHINE
     Indication: Prophylaxis
  97. TAMSULOSIN [Concomitant]
     Active Substance: TAMSULOSIN
     Indication: Benign prostatic hyperplasia
     Dosage: UNK
     Route: 065
  98. VANCOMYCIN [Concomitant]
     Active Substance: VANCOMYCIN
     Indication: Device related infection
     Dosage: UNK
     Route: 065
     Dates: start: 20210214

REACTIONS (3)
  - Bone marrow failure [Recovered/Resolved]
  - Septic shock [Recovered/Resolved]
  - Abscess [Recovered/Resolved]

NARRATIVE: CASE EVENT DATE: 20210401
